FAERS Safety Report 23546041 (Version 6)
Quarter: 2024Q1

REPORT INFORMATION
  Report Type: Report from Study
  Country: BG (occurrence: BG)
  Receive Date: 20240220
  Receipt Date: 20240325
  Transmission Date: 20240410
  Serious: Yes (Hospitalization, Other)
  Sender: FDA-Public Use
  Company Number: BG-AKCEA THERAPEUTICS, INC.-2024IS001498

PATIENT

DRUGS (3)
  1. TEGSEDI [Suspect]
     Active Substance: INOTERSEN SODIUM
     Indication: Hereditary neuropathic amyloidosis
     Dosage: 284 MILLIGRAM, QOW
     Route: 058
     Dates: start: 20240122
  2. TEGSEDI [Suspect]
     Active Substance: INOTERSEN SODIUM
     Dosage: UNK
     Route: 065
  3. TRIFAS [TORASEMIDE SODIUM] [Concomitant]
     Indication: Product used for unknown indication
     Dosage: UNK, 1 TABLET QD
     Route: 065

REACTIONS (40)
  - Haematuria [Recovered/Resolved]
  - Proteinuria [Not Recovered/Not Resolved]
  - Protein urine present [Unknown]
  - Urine protein/creatinine ratio increased [Unknown]
  - Catheter placement [Unknown]
  - Prostate examination abnormal [Unknown]
  - Haemoglobin decreased [Unknown]
  - Platelet count decreased [Recovered/Resolved]
  - Blood creatinine decreased [Unknown]
  - Creatinine urine decreased [Unknown]
  - Neutrophil percentage increased [Recovered/Resolved]
  - Neutrophil count increased [Recovered/Resolved]
  - Lymphocyte percentage decreased [Unknown]
  - Red blood cell count decreased [Unknown]
  - Haematocrit decreased [Unknown]
  - Mean cell volume increased [Recovered/Resolved]
  - Mean cell haemoglobin increased [Recovered/Resolved]
  - Red cell distribution width increased [Unknown]
  - Oedema [Unknown]
  - Blood pressure increased [Unknown]
  - Fatigue [Unknown]
  - Urine abnormality [Unknown]
  - Headache [Unknown]
  - Oliguria [Unknown]
  - Abdominal pain [Unknown]
  - Epistaxis [Unknown]
  - Cough [Unknown]
  - Decreased appetite [Unknown]
  - Nausea [Unknown]
  - Vomiting [Unknown]
  - Insomnia [Unknown]
  - Dry skin [Unknown]
  - Pruritus [Unknown]
  - Muscle spasms [Unknown]
  - Anaemia [Unknown]
  - Platelet count decreased [Recovered/Resolved]
  - Peripheral swelling [Not Recovered/Not Resolved]
  - Visual impairment [Unknown]
  - Tremor [Unknown]
  - Middle insomnia [Unknown]

NARRATIVE: CASE EVENT DATE: 20240109
